FAERS Safety Report 12156255 (Version 1)
Quarter: 2016Q1

REPORT INFORMATION
  Report Type: Spontaneous
  Country: US (occurrence: US)
  Receive Date: 20160307
  Receipt Date: 20160307
  Transmission Date: 20160526
  Serious: No
  Sender: FDA-Public Use
  Company Number: US-ASTRAZENECA-2016SE23379

PATIENT
  Sex: Female

DRUGS (6)
  1. MIRALAX [Concomitant]
     Active Substance: POLYETHYLENE GLYCOL 3350
     Indication: CONSTIPATION
  2. NEXIUM [Suspect]
     Active Substance: ESOMEPRAZOLE MAGNESIUM
     Indication: DYSPEPSIA
     Route: 048
  3. BENEFIBER [Concomitant]
     Active Substance: STARCH, WHEAT
     Indication: CONSTIPATION
  4. NEXIUM [Suspect]
     Active Substance: ESOMEPRAZOLE MAGNESIUM
     Indication: BARRETT^S OESOPHAGUS
     Route: 048
  5. NEXIUM [Suspect]
     Active Substance: ESOMEPRAZOLE MAGNESIUM
     Indication: DYSPEPSIA
     Route: 048
  6. NEXIUM [Suspect]
     Active Substance: ESOMEPRAZOLE MAGNESIUM
     Indication: BARRETT^S OESOPHAGUS
     Route: 048

REACTIONS (3)
  - Constipation [Not Recovered/Not Resolved]
  - Diarrhoea [Recovered/Resolved]
  - Product use issue [Unknown]
